FAERS Safety Report 9723367 (Version 1)
Quarter: 2013Q4

REPORT INFORMATION
  Report Type: Spontaneous
  Country: US (occurrence: US)
  Receive Date: 20131202
  Receipt Date: 20131202
  Transmission Date: 20140711
  Serious: No
  Sender: FDA-Public Use
  Company Number: US-GLAXOSMITHKLINE-A1032222A

PATIENT
  Age: 53 Year
  Sex: Female

DRUGS (3)
  1. FLONASE [Suspect]
     Indication: NASAL CONGESTION
     Dosage: 1SPR TWICE PER DAY
     Route: 045
     Dates: start: 2010
  2. FOSAMAX [Concomitant]
  3. TRIAMTERENE HCTZ [Concomitant]

REACTIONS (1)
  - Breath odour [Not Recovered/Not Resolved]
